FAERS Safety Report 6543309-8 (Version None)
Quarter: 2010Q1

REPORT INFORMATION
  Report Type: 
  Country: None (occurrence: None)
  Receive Date: 20100120
  Receipt Date: 20100112
  Transmission Date: 20100710
  Serious: Yes (Other)
  Sender: FDA-Public Use
  Company Number: US-SANOFI-AVENTIS-2010SA001980

PATIENT
  Age: 37 Year
  Sex: Female

DRUGS (5)
  1. LANTUS [Suspect]
     Dosage: DOSE:30 UNIT(S)
     Route: 058
  2. HUMALOG [Concomitant]
     Dosage: AS PER SLIDING SCALE
  3. SYNTHROID [Concomitant]
  4. ADVAIR [Concomitant]
  5. VENTOLIN [Concomitant]

REACTIONS (3)
  - BLOOD GLUCOSE INCREASED [None]
  - FALL [None]
  - LOWER LIMB FRACTURE [None]
